FAERS Safety Report 5228961-1 (Version None)
Quarter: 2007Q1

REPORT INFORMATION
  Report Type: 
  Country: None (occurrence: None)
  Receive Date: 20061201
  Receipt Date: 20061005
  Transmission Date: 20070707
  Serious: No
  Sender: FDA-Public Use
  Company Number: US200610001362

PATIENT
  Age: 72 Year
  Sex: Female

DRUGS (1)
  1. CYMBALTA [Suspect]
     Dosage: 60 MG
     Dates: end: 20061003

REACTIONS (4)
  - BLADDER DISORDER [None]
  - HEADACHE [None]
  - NAUSEA [None]
  - TREMOR [None]
